FAERS Safety Report 13254043 (Version 1)
Quarter: 2017Q1

REPORT INFORMATION
  Report Type: Spontaneous
  Country: US (occurrence: US)
  Receive Date: 20170221
  Receipt Date: 20170221
  Transmission Date: 20170428
  Serious: No
  Sender: FDA-Public Use
  Company Number: PHEH2017US004350

PATIENT
  Sex: Female

DRUGS (3)
  1. VIVELLE-DOT [Suspect]
     Active Substance: ESTRADIOL
     Indication: MENORRHAGIA
     Dosage: 0.025 MG (CONCENTRATION)
     Route: 062
     Dates: start: 20160808
  2. VIVELLE-DOT [Suspect]
     Active Substance: ESTRADIOL
     Dosage: 0.075 MG, BIW
     Route: 062
     Dates: start: 20161018, end: 20161019
  3. GENOTROPIN [Concomitant]
     Active Substance: SOMATROPIN
     Indication: TURNER^S SYNDROME
     Dosage: 3 MG, QD
     Route: 058
     Dates: start: 201503

REACTIONS (1)
  - Metrorrhagia [Unknown]
